FAERS Safety Report 19036010 (Version 1)
Quarter: 2021Q1

REPORT INFORMATION
  Report Type: Spontaneous
  Country: US (occurrence: US)
  Receive Date: 20210319
  Receipt Date: 20210319
  Transmission Date: 20210420
  Serious: Yes (Hospitalization)
  Sender: FDA-Public Use
  Company Number: None

PATIENT
  Age: 54 Year
  Sex: Male
  Weight: 90.72 kg

DRUGS (3)
  1. DEXAMETHASONE. [Suspect]
     Active Substance: DEXAMETHASONE
     Dates: end: 20150306
  2. LENALIDOMIDE (CC?5013) [Suspect]
     Active Substance: LENALIDOMIDE
     Dates: end: 20150308
  3. VELCADE [Suspect]
     Active Substance: BORTEZOMIB
     Dates: end: 20151006

REACTIONS (2)
  - Non-small cell lung cancer [None]
  - Adenocarcinoma [None]

NARRATIVE: CASE EVENT DATE: 20201002
